FAERS Safety Report 5598518-1 (Version None)
Quarter: 2008Q1

REPORT INFORMATION
  Report Type: 
  Country: None (occurrence: None)
  Receive Date: 20080122
  Receipt Date: 20080118
  Transmission Date: 20080703
  Serious: Yes (Life-Threatening, Hospitalization)
  Sender: FDA-Public Use
  Company Number: PHBS2007JP20614

PATIENT
  Age: 43 Year
  Sex: Male

DRUGS (4)
  1. VOLTAREN [Suspect]
     Indication: PYREXIA
     Dosage: 50 MG/DAY
     Route: 054
     Dates: start: 20050612, end: 20050612
  2. RIMATIL [Suspect]
     Indication: ARTHRALGIA
     Dosage: 150 MG/DAY
     Route: 048
     Dates: start: 20050529, end: 20050612
  3. PREDNISOLONE [Concomitant]
     Indication: ARTHRALGIA
     Dosage: 20 MG, UNK
     Route: 048
     Dates: start: 19970901
  4. PREDNISOLONE [Concomitant]
     Dosage: 60 MG, UNK
     Route: 048

REACTIONS (17)
  - ALANINE AMINOTRANSFERASE INCREASED [None]
  - ASPARTATE AMINOTRANSFERASE INCREASED [None]
  - BLOOD ALKALINE PHOSPHATASE INCREASED [None]
  - BLOOD BILIRUBIN INCREASED [None]
  - BLOOD CREATININE INCREASED [None]
  - BLOOD LACTATE DEHYDROGENASE INCREASED [None]
  - BLOOD UREA INCREASED [None]
  - C-REACTIVE PROTEIN INCREASED [None]
  - DISSEMINATED INTRAVASCULAR COAGULATION [None]
  - GAMMA-GLUTAMYLTRANSFERASE INCREASED [None]
  - LIVER DISORDER [None]
  - LOSS OF CONSCIOUSNESS [None]
  - LYMPHOCYTE COUNT INCREASED [None]
  - MULTI-ORGAN FAILURE [None]
  - NEUTROPHIL COUNT INCREASED [None]
  - PLATELET MORPHOLOGY ABNORMAL [None]
  - STEVENS-JOHNSON SYNDROME [None]
